FAERS Safety Report 14349985 (Version 1)
Quarter: 2018Q1

REPORT INFORMATION
  Report Type: Spontaneous
  Country: FR (occurrence: FR)
  Receive Date: 20180104
  Receipt Date: 20180104
  Transmission Date: 20180509
  Serious: Yes (Other)
  Sender: FDA-Public Use
  Company Number: FR-AUROBINDO-AUR-APL-2017-48669

PATIENT
  Age: 38 Year
  Sex: Male
  Weight: 68 kg

DRUGS (8)
  1. LOXAPAC                            /00401801/ [Concomitant]
     Active Substance: LOXAPINE
  2. SERESTA [Concomitant]
     Active Substance: OXAZEPAM
  3. IZILOX [Suspect]
     Active Substance: MOXIFLOXACIN HYDROCHLORIDE
     Indication: TUBERCULOSIS
     Dosage: 2 DF, UNK
     Route: 048
     Dates: start: 20151012
  4. CETIRIZINE [Concomitant]
     Active Substance: CETIRIZINE HYDROCHLORIDE
  5. EUPANTOL [Concomitant]
     Active Substance: PANTOPRAZOLE SODIUM
  6. CLOFAZIMINE [Suspect]
     Active Substance: CLOFAZIMINE
     Indication: TUBERCULOSIS
     Dosage: 2 DF, UNK
     Route: 048
     Dates: start: 20151012
  7. LINEZOLID ARROW 600 MG [Suspect]
     Active Substance: LINEZOLID
     Indication: TUBERCULOSIS
     Route: 048
     Dates: start: 20151012, end: 20171116
  8. DELTYBA [Suspect]
     Active Substance: DELAMANID
     Indication: TUBERCULOSIS
     Dosage: 4 DF, UNK
     Route: 048
     Dates: start: 20151123

REACTIONS (2)
  - Polyneuropathy [Not Recovered/Not Resolved]
  - Computerised tomogram thorax abnormal [Not Recovered/Not Resolved]

NARRATIVE: CASE EVENT DATE: 20171006
